FAERS Safety Report 11070599 (Version 1)
Quarter: 2015Q2

REPORT INFORMATION
  Report Type: Spontaneous
  Country: JP (occurrence: JP)
  Receive Date: 20150427
  Receipt Date: 20150427
  Transmission Date: 20150821
  Serious: Yes (Other)
  Sender: FDA-Public Use
  Company Number: PHHY2014JP042801

PATIENT
  Sex: Female

DRUGS (9)
  1. CELLCEPT [Concomitant]
     Active Substance: MYCOPHENOLATE MOFETIL\MYCOPHENOLATE MOFETIL HYDROCHLORIDE
     Dosage: UNK
     Route: 048
  2. MEDROL [Concomitant]
     Active Substance: METHYLPREDNISOLONE
     Dosage: UNK
     Route: 048
  3. TASIGNA [Suspect]
     Active Substance: NILOTINIB
     Route: 048
  4. PROGRAF [Concomitant]
     Active Substance: TACROLIMUS\TACROLIMUS ANHYDROUS
     Indication: RENAL TRANSPLANT
     Dosage: UNK
     Route: 048
  5. CERTICAN [Suspect]
     Active Substance: EVEROLIMUS
     Route: 048
  6. CEFZON [Suspect]
     Active Substance: CEFDINIR
     Indication: CYSTITIS
     Dosage: UNK UKN, UNK
     Route: 048
  7. TASIGNA [Suspect]
     Active Substance: NILOTINIB
     Indication: CHRONIC MYELOID LEUKAEMIA
     Dosage: 400 MG, DAILY
     Route: 048
  8. CERTICAN [Suspect]
     Active Substance: EVEROLIMUS
     Indication: RENAL TRANSPLANT
     Dosage: 0.25 MG, QID (2 TAB IN MORNING AND 2 IN EVENING)
  9. GENINAX [Suspect]
     Active Substance: GARENOXACIN MESYLATE
     Indication: NASOPHARYNGITIS
     Dosage: 1 UKN, UNK
     Route: 048

REACTIONS (28)
  - Blood cholesterol increased [Unknown]
  - Nail disorder [Unknown]
  - Arthropathy [Recovering/Resolving]
  - Oedema peripheral [Not Recovered/Not Resolved]
  - Eye pain [Recovering/Resolving]
  - Musculoskeletal stiffness [Recovering/Resolving]
  - Face oedema [Not Recovered/Not Resolved]
  - Cystitis [Unknown]
  - Alopecia [Unknown]
  - Pain [Recovering/Resolving]
  - Diarrhoea [Unknown]
  - Chronic kidney disease [Unknown]
  - Cushingoid [Not Recovered/Not Resolved]
  - Blood pressure increased [Not Recovered/Not Resolved]
  - Renal function test abnormal [Recovering/Resolving]
  - Hair disorder [Unknown]
  - Immunosuppressant drug level increased [Unknown]
  - Nasopharyngitis [Unknown]
  - Constipation [Unknown]
  - Blood creatinine increased [Recovering/Resolving]
  - Blood uric acid increased [Not Recovered/Not Resolved]
  - General physical health deterioration [Unknown]
  - Conjunctival oedema [Unknown]
  - Eczema [Unknown]
  - Conjunctival haemorrhage [Unknown]
  - Depression [Recovered/Resolved]
  - Musculoskeletal pain [Recovering/Resolving]
  - Asthenia [Unknown]

NARRATIVE: CASE EVENT DATE: 2013
